FAERS Safety Report 9925236 (Version 1)
Quarter: 2014Q1

REPORT INFORMATION
  Report Type: Spontaneous
  Country: US (occurrence: US)
  Receive Date: 20140226
  Receipt Date: 20140226
  Transmission Date: 20141002
  Serious: Yes (Hospitalization)
  Sender: FDA-Public Use
  Company Number: US-BRACCO-009200

PATIENT
  Age: 72 Year
  Sex: Female

DRUGS (3)
  1. BENADRYL [Concomitant]
     Dates: start: 20130206, end: 20130206
  2. PREDNISONE [Concomitant]
     Dates: start: 20130206, end: 20130206
  3. ISOVUE 300 [Suspect]
     Indication: EPIDURAL INJECTION
     Route: 008
     Dates: start: 20130207, end: 20130207

REACTIONS (1)
  - Confusional state [Unknown]
